FAERS Safety Report 16083176 (Version 1)
Quarter: 2019Q1

REPORT INFORMATION
  Report Type: Spontaneous
  Country: US (occurrence: US)
  Receive Date: 20190318
  Receipt Date: 20190318
  Transmission Date: 20190418
  Serious: No
  Sender: FDA-Public Use
  Company Number: US-BAYER-2019-052680

PATIENT
  Age: 4 Year
  Sex: Female

DRUGS (5)
  1. CLARITIN [Suspect]
     Active Substance: LORATADINE
     Indication: SINUS DISORDER
     Dosage: UNK
  2. ROBITUSSIN [AMYLMETACRESOL;DICHLOROBENZYL ALCOHOL] [Concomitant]
     Indication: NASOPHARYNGITIS
  3. CLARITIN [Suspect]
     Active Substance: LORATADINE
     Indication: SINUS DISORDER
     Dosage: UNK
  4. ROBITUSSIN [AMYLMETACRESOL;DICHLOROBENZYL ALCOHOL] [Concomitant]
     Indication: HYPERSENSITIVITY
     Dosage: UNK
     Dates: start: 20180424
  5. TYLENOL [Suspect]
     Active Substance: ACETAMINOPHEN
     Dosage: UNK

REACTIONS (4)
  - Product use in unapproved indication [Unknown]
  - Lethargy [Unknown]
  - Unevaluable event [Unknown]
  - Overdose [Unknown]
